FAERS Safety Report 4862189-X (Version None)
Quarter: 2005Q4

REPORT INFORMATION
  Report Type: 
  Country: None (occurrence: None)
  Receive Date: 20051130
  Receipt Date: 20050729
  Transmission Date: 20060501
  Serious: Yes (Other)
  Sender: FDA-Public Use
  Company Number: A03200502346

PATIENT
  Age: 57 Year
  Sex: Male
  Weight: 101.1521 kg

DRUGS (6)
  1. ELOXATIN [Suspect]
     Indication: COLON CANCER
     Dosage: 100 MG Q2W - INTRAVENOUS NOS
     Route: 042
     Dates: start: 20050729, end: 20050729
  2. ELOXATIN [Suspect]
     Indication: COLON CANCER
     Dosage: 30 MG Q2W - INTRAVENOUS NOS
     Route: 042
     Dates: start: 20050729, end: 20050729
  3. FLUOROURACIL [Concomitant]
  4. LEUCOVORIN [Concomitant]
  5. GRANISETRON [Concomitant]
  6. DEXAMETHASONE TAB [Concomitant]

REACTIONS (5)
  - ANAPHYLACTIC REACTION [None]
  - DYSPNOEA [None]
  - PRURITUS [None]
  - THROAT TIGHTNESS [None]
  - TONGUE DISORDER [None]
